FAERS Safety Report 19577211 (Version 2)
Quarter: 2021Q3

REPORT INFORMATION
  Report Type: Spontaneous
  Country: US (occurrence: US)
  Receive Date: 20210719
  Receipt Date: 20210805
  Transmission Date: 20211014
  Serious: Yes (Hospitalization)
  Sender: FDA-Public Use
  Company Number: US-ABBVIE-21K-163-3972510-00

PATIENT
  Age: 81 Year
  Sex: Female

DRUGS (6)
  1. SYNTHROID [Suspect]
     Active Substance: LEVOTHYROXINE SODIUM
     Indication: AUTOIMMUNE THYROIDITIS
     Route: 048
  2. SYNTHROID [Suspect]
     Active Substance: LEVOTHYROXINE SODIUM
     Indication: THYROID OPERATION
     Route: 048
     Dates: start: 202102, end: 2021
  3. SYNTHROID [Suspect]
     Active Substance: LEVOTHYROXINE SODIUM
     Route: 048
     Dates: start: 20210708, end: 202107
  4. SYNTHROID [Suspect]
     Active Substance: LEVOTHYROXINE SODIUM
     Dosage: A LITTLE BIT MORE THAN 100 MCG
     Route: 048
     Dates: start: 20210712
  5. SYNTHROID [Suspect]
     Active Substance: LEVOTHYROXINE SODIUM
     Route: 048
     Dates: start: 20210707, end: 20210707
  6. SYNTHROID [Suspect]
     Active Substance: LEVOTHYROXINE SODIUM
     Dosage: 112MCG TABLETS, CUT A LITTLE OF IT OFF TO MAKE IT CLOSER TO 100MCG
     Route: 048
     Dates: start: 202107, end: 202107

REACTIONS (16)
  - Tremor [Not Recovered/Not Resolved]
  - Varicose vein [Unknown]
  - Malaise [Not Recovered/Not Resolved]
  - Product quality issue [Not Recovered/Not Resolved]
  - Hypoaesthesia [Unknown]
  - Oedema [Unknown]
  - Intentional product misuse [Unknown]
  - Muscle spasms [Unknown]
  - Poor peripheral circulation [Not Recovered/Not Resolved]
  - Paraesthesia [Unknown]
  - Adverse drug reaction [Not Recovered/Not Resolved]
  - Hypersensitivity [Unknown]
  - Nervousness [Unknown]
  - Nasopharyngitis [Not Recovered/Not Resolved]
  - Musculoskeletal disorder [Not Recovered/Not Resolved]
  - Arthralgia [Unknown]

NARRATIVE: CASE EVENT DATE: 20200919
